FAERS Safety Report 6887499-6 (Version None)
Quarter: 2010Q3

REPORT INFORMATION
  Report Type: 
  Country: None (occurrence: None)
  Receive Date: 20100730
  Receipt Date: 20100715
  Transmission Date: 20110219
  Serious: Yes (Other)
  Sender: FDA-Public Use
  Company Number: US-BAYER-201016594NA

PATIENT
  Age: 41 Year
  Sex: Female
  Weight: 136 kg

DRUGS (7)
  1. YASMIN [Suspect]
     Indication: CONTRACEPTION
     Route: 048
     Dates: start: 20070101, end: 20090108
  2. DROSPIRENONE AND EHTINYL ESTRADIOL [Suspect]
     Indication: CONTRACEPTION
     Route: 048
     Dates: start: 20070101, end: 20090108
  3. ALEVE (CAPLET) [Concomitant]
  4. IBUPROFEN [Concomitant]
  5. EXCEDRIN (MIGRAINE) [Concomitant]
     Indication: MIGRAINE
  6. PREVACID [Concomitant]
  7. LOMOTIL [Concomitant]

REACTIONS (8)
  - ABDOMINAL PAIN UPPER [None]
  - DIARRHOEA [None]
  - DYSPEPSIA [None]
  - FLATULENCE [None]
  - GALLBLADDER DISORDER [None]
  - GASTROOESOPHAGEAL REFLUX DISEASE [None]
  - NAUSEA [None]
  - VOMITING [None]
